FAERS Safety Report 15407715 (Version 1)
Quarter: 2018Q3

REPORT INFORMATION
  Report Type: Report from Study
  Country: US (occurrence: US)
  Receive Date: 20180920
  Receipt Date: 20180920
  Transmission Date: 20181010
  Serious: Yes (Hospitalization)
  Sender: FDA-Public Use
  Company Number: US-TAKEDA-2018MPI011610

PATIENT
  Age: 82 Year
  Sex: Male
  Weight: 64.4 kg

DRUGS (12)
  1. GAMMAPLEX [Concomitant]
     Active Substance: HUMAN IMMUNOGLOBULIN G
     Indication: PLASMA CELL MYELOMA
     Dosage: 30000 MG, UNK
     Route: 042
     Dates: start: 20170329, end: 20170726
  2. DARZALEX [Concomitant]
     Active Substance: DARATUMUMAB
     Indication: PLASMA CELL MYELOMA
     Dosage: 520 MG, UNK
     Route: 042
     Dates: start: 20170501, end: 20180413
  3. PAMIDRONATE [Concomitant]
     Active Substance: PAMIDRONATE DISODIUM
     Dosage: 30 MG, UNK
     Route: 042
     Dates: start: 20170807, end: 20180202
  4. DARBEPOETIN ALFA [Concomitant]
     Active Substance: DARBEPOETIN ALFA
     Indication: PLASMA CELL MYELOMA
     Dosage: 300 UG, Q2WEEKS
     Route: 058
     Dates: start: 20170328, end: 20180501
  5. KYPROLIS [Concomitant]
     Active Substance: CARFILZOMIB
     Dosage: 48 MG, UNK
     Route: 042
     Dates: start: 20180515, end: 20180629
  6. DECADRON [Concomitant]
     Active Substance: DEXAMETHASONE
     Dosage: 12 MG, UNK
     Route: 048
     Dates: start: 20180515, end: 20180629
  7. BORTEZOMIB. [Suspect]
     Active Substance: BORTEZOMIB
     Indication: PLASMA CELL MYELOMA
     Dosage: 2.3 MG, UNK
     Route: 058
     Dates: start: 20170501
  8. DARZALEX [Concomitant]
     Active Substance: DARATUMUMAB
     Dosage: 1000 MG, UNK
     Route: 042
     Dates: start: 20170508
  9. DECADRON [Concomitant]
     Active Substance: DEXAMETHASONE
     Indication: PLASMA CELL MYELOMA
     Dosage: 40 MG, UNK
     Route: 048
     Dates: start: 20170501, end: 20180420
  10. POMALYST [Concomitant]
     Active Substance: POMALIDOMIDE
     Indication: PLASMA CELL MYELOMA
     Dosage: 4 MG, UNK
     Route: 048
     Dates: start: 20180515, end: 20180629
  11. ASPIRIN                            /00002701/ [Concomitant]
     Active Substance: ASPIRIN
     Dosage: UNK
  12. FILGRASTIM [Concomitant]
     Active Substance: FILGRASTIM
     Dosage: UNK

REACTIONS (1)
  - Presbyoesophagus [Recovered/Resolved]

NARRATIVE: CASE EVENT DATE: 20170622
